FAERS Safety Report 8380051-5 (Version None)
Quarter: 2012Q2

REPORT INFORMATION
  Report Type: 
  Country: None (occurrence: None)
  Receive Date: 20120523
  Receipt Date: 20120510
  Transmission Date: 20120825
  Serious: Yes (Hospitalization)
  Sender: FDA-Public Use
  Company Number: US-GLAXOSMITHKLINE-A0937844A

PATIENT
  Age: 53 Year
  Sex: Male
  Weight: 102.3 kg

DRUGS (5)
  1. AVANDAMET [Suspect]
     Indication: DIABETES MELLITUS
     Route: 048
     Dates: start: 20070501, end: 20081101
  2. TRICOR [Concomitant]
  3. AVANDIA [Suspect]
     Indication: DIABETES MELLITUS
     Dosage: 4MG TWICE PER DAY
     Route: 048
     Dates: start: 20040101, end: 20070501
  4. NEXIUM [Concomitant]
  5. LISINOPRIL [Concomitant]

REACTIONS (3)
  - MYOCARDIAL INFARCTION [None]
  - ATRIAL FIBRILLATION [None]
  - CORONARY ARTERY DISEASE [None]
